FAERS Safety Report 8850715 (Version 3)
Quarter: 2012Q4

REPORT INFORMATION
  Report Type: 
  Country: JP (occurrence: JP)
  Receive Date: 20121019
  Receipt Date: 20121127
  Transmission Date: 20130627
  Serious: Yes (Hospitalization, Other)
  Sender: FDA-Public Use
  Company Number: JP-BAYER-2012-109043

PATIENT
  Age: 36 Year
  Sex: Male

DRUGS (2)
  1. BETAFERON [Suspect]
     Indication: MULTIPLE SCLEROSIS
     Dosage: UNK miu, UNK
     Route: 058
     Dates: start: 199604, end: 199809
  2. BETAFERON [Suspect]
     Indication: MULTIPLE SCLEROSIS
     Dosage: Daily dose 8miu
     Route: 058
     Dates: start: 20080226

REACTIONS (4)
  - Weight decreased [Not Recovered/Not Resolved]
  - Multiple sclerosis relapse [None]
  - Type 1 diabetes mellitus [Not Recovered/Not Resolved]
  - Thirst [Not Recovered/Not Resolved]
